FAERS Safety Report 6992706-5 (Version None)
Quarter: 2010Q3

REPORT INFORMATION
  Report Type: 
  Country: None (occurrence: None)
  Receive Date: 20100917
  Receipt Date: 20100903
  Transmission Date: 20110219
  Serious: Yes (Other)
  Sender: FDA-Public Use
  Company Number: JP-MERCK-1009USA00751

PATIENT
  Age: 66 Year
  Sex: Male
  Weight: 67 kg

DRUGS (15)
  1. JANUVIA [Suspect]
     Indication: DIABETES MELLITUS
     Route: 048
     Dates: start: 20100115
  2. VOLTAREN [Suspect]
     Dosage: BEFORE BREAKFAST, AFTER DINNER
     Route: 048
     Dates: start: 20060101
  3. BASEN OD [Concomitant]
     Indication: HYPERGLYCAEMIA
     Route: 048
     Dates: start: 20050112, end: 20090416
  4. OPALMON [Concomitant]
     Indication: HYPOAESTHESIA
     Route: 048
     Dates: start: 20080229
  5. CRESTOR [Concomitant]
     Indication: HYPERCHOLESTEROLAEMIA
     Route: 048
     Dates: start: 20090915
  6. CRESTOR [Concomitant]
     Indication: BLOOD CHOLESTEROL
     Route: 048
     Dates: start: 20090915
  7. GLYBURIDE [Concomitant]
     Indication: HYPERGLYCAEMIA
     Dosage: 2.5 MG - 0MG - 1.25 MG
     Route: 048
     Dates: start: 20080111, end: 20100629
  8. GLYBURIDE [Concomitant]
     Dosage: BEFORE BREACKFAST, BEFORE DINNER
     Route: 048
     Dates: start: 20100630
  9. VESICARE [Concomitant]
     Indication: NOCTURIA
     Dosage: AFTER DINNER
     Route: 048
     Dates: start: 20080929
  10. FLIVAS [Concomitant]
     Indication: NOCTURIA
     Route: 048
     Dates: start: 20080929
  11. NEUROTROPIN [Concomitant]
     Dosage: AFTER BREACKFAST, AFTER DINNER
     Route: 048
     Dates: start: 20060101
  12. TIZANIDINE HCL [Concomitant]
     Route: 048
     Dates: start: 20060101
  13. GASLON N [Concomitant]
     Dosage: AFTER BREAKFAST, AFTER DINNER
     Route: 048
     Dates: start: 20060101
  14. DEPAS [Concomitant]
     Dosage: BEFORE BEDTIME
     Route: 048
     Dates: start: 20060101
  15. MOHRUS L [Concomitant]
     Route: 061
     Dates: start: 20060101

REACTIONS (8)
  - GASTRITIS [None]
  - GASTRITIS EROSIVE [None]
  - GASTROINTESTINAL HAEMORRHAGE [None]
  - HAEMOGLOBIN DECREASED [None]
  - MICROCYTIC ANAEMIA [None]
  - PLATELET COUNT DECREASED [None]
  - RED BLOOD CELL COUNT DECREASED [None]
  - REFLUX OESOPHAGITIS [None]
